FAERS Safety Report 20906797 (Version 1)
Quarter: 2022Q2

REPORT INFORMATION
  Report Type: Spontaneous
  Country: TR (occurrence: TR)
  Receive Date: 20220602
  Receipt Date: 20220602
  Transmission Date: 20220721
  Serious: Yes (Other)
  Sender: FDA-Public Use
  Company Number: TR-NOVARTISPH-NVSC2022TR123238

PATIENT
  Sex: Male

DRUGS (1)
  1. FINGOLIMOD [Suspect]
     Active Substance: FINGOLIMOD
     Indication: Multiple sclerosis
     Dosage: STARTED 4 YEARS AGO
     Route: 065

REACTIONS (3)
  - Immunosuppression [Unknown]
  - Full blood count abnormal [Unknown]
  - Lymphocyte count decreased [Unknown]
